FAERS Safety Report 8869906 (Version 1)
Quarter: 2012Q4

REPORT INFORMATION
  Report Type: Spontaneous
  Country: US (occurrence: None)
  Receive Date: 20121024
  Receipt Date: 20121024
  Transmission Date: 20130627
  Serious: Yes (Hospitalization)
  Sender: FDA-Public Use
  Company Number: 100816-001168

PATIENT
  Age: 52 Year
  Sex: Female

DRUGS (3)
  1. SHEER COVER MINERAL FOUNDATION SPF-15 ALMOND [Suspect]
     Dosage: once daily dermal
     Dates: start: 20100514, end: 20100803
  2. NOURISHING MOISTURIZER SPF [Suspect]
     Dosage: once daily dermal
     Dates: start: 20100514, end: 20100803
  3. EPIPEN [Concomitant]

REACTIONS (4)
  - Asthma [None]
  - Eye swelling [None]
  - Rash erythematous [None]
  - Rash pruritic [None]
